FAERS Safety Report 11450193 (Version 1)
Quarter: 2015Q3

REPORT INFORMATION
  Report Type: Spontaneous
  Country: US (occurrence: None)
  Receive Date: 20150827
  Receipt Date: 20150827
  Transmission Date: 20151125
  Serious: Yes (Disabling)
  Sender: FDA-Public Use
  Company Number: 2015AP008025

PATIENT
  Age: 75 Year
  Sex: Female

DRUGS (2)
  1. CARBIDOPA AND LEVODOPA [Suspect]
     Active Substance: CARBIDOPA\LEVODOPA
     Indication: PARKINSON^S DISEASE
     Dosage: 1.5 DF
     Route: 048
  2. ROPINIROLE. [Concomitant]
     Active Substance: ROPINIROLE

REACTIONS (4)
  - Orthostatic hypotension [None]
  - Dyskinesia [None]
  - Syncope [None]
  - Drug effect incomplete [None]
